FAERS Safety Report 6966049-X (Version None)
Quarter: 2010Q3

REPORT INFORMATION
  Report Type: 
  Country: None (occurrence: None)
  Receive Date: 20100903
  Receipt Date: 20100528
  Transmission Date: 20110219
  Serious: No
  Sender: FDA-Public Use
  Company Number: A0861982A

PATIENT
  Age: 62 Year
  Sex: Female

DRUGS (3)
  1. LAMICTAL [Suspect]
     Indication: SIMPLE PARTIAL SEIZURES
     Dosage: 50MG PER DAY
     Route: 048
     Dates: start: 20100501
  2. LAMICTAL XR [Suspect]
     Indication: SIMPLE PARTIAL SEIZURES
     Dosage: 100MG PER DAY
     Route: 048
     Dates: start: 20100401, end: 20100426
  3. VITAMINS [Concomitant]

REACTIONS (5)
  - ADVERSE EVENT [None]
  - MALAISE [None]
  - NERVOUSNESS [None]
  - RASH [None]
  - TREMOR [None]
